FAERS Safety Report 19355464 (Version 1)
Quarter: 2021Q2

REPORT INFORMATION
  Report Type: Spontaneous
  Country: CN (occurrence: CN)
  Receive Date: 20210602
  Receipt Date: 20210602
  Transmission Date: 20210717
  Serious: Yes (Other)
  Sender: FDA-Public Use
  Company Number: CN-ROCHE-2840263

PATIENT
  Age: 25 Year
  Sex: Female
  Weight: 46.3 kg

DRUGS (1)
  1. MABTHERA [Suspect]
     Active Substance: RITUXIMAB
     Indication: GLOMERULONEPHRITIS MEMBRANOUS
     Dosage: PUMP INJECTION;INJECTION
     Route: 041
     Dates: start: 20210520, end: 20210520

REACTIONS (5)
  - Dizziness [Recovering/Resolving]
  - Pruritus [Unknown]
  - Dry throat [Recovering/Resolving]
  - Off label use [Unknown]
  - Pyrexia [Recovering/Resolving]

NARRATIVE: CASE EVENT DATE: 20210520
